FAERS Safety Report 17256568 (Version 1)
Quarter: 2019Q4

REPORT INFORMATION
  Report Type: Spontaneous
  Country: US (occurrence: US)
  Receive Date: 20191217
  Receipt Date: 20191217
  Transmission Date: 20200122
  Serious: No
  Sender: FDA-Public Use
  Company Number: None

PATIENT
  Age: 42 Year
  Sex: Female

DRUGS (1)
  1. MAVYRET [Suspect]
     Active Substance: GLECAPREVIR\PIBRENTASVIR
     Indication: HEPATITIS C
     Dosage: ?          OTHER DOSE:100MG-40MG;?
     Route: 048
     Dates: start: 201911

REACTIONS (6)
  - Skin exfoliation [None]
  - Pruritus [None]
  - Dry skin [None]
  - Eye swelling [None]
  - Panic attack [None]
  - Skin ulcer [None]

NARRATIVE: CASE EVENT DATE: 20191217
